FAERS Safety Report 5487429-8 (Version None)
Quarter: 2007Q4

REPORT INFORMATION
  Report Type: 
  Country: None (occurrence: None)
  Receive Date: 20071016
  Receipt Date: 20071004
  Transmission Date: 20080405
  Serious: Yes (Hospitalization, Other)
  Sender: FDA-Public Use
  Company Number: US-PFIZER INC-2006108913

PATIENT
  Sex: Female
  Weight: 68 kg

DRUGS (7)
  1. BEXTRA [Suspect]
     Indication: PAIN
  2. VIOXX [Suspect]
     Indication: ARTHRITIS
     Route: 048
  3. INDAPAMIDE [Concomitant]
     Indication: OEDEMA PERIPHERAL
     Dates: start: 20011123, end: 20040405
  4. PRAVACHOL [Concomitant]
     Indication: BLOOD CHOLESTEROL INCREASED
     Dates: start: 20010705, end: 20040131
  5. LIPITOR [Concomitant]
     Indication: BLOOD CHOLESTEROL INCREASED
     Dates: start: 19980624, end: 20020609
  6. ALORA [Concomitant]
     Indication: HORMONE REPLACEMENT THERAPY
     Dates: start: 19991115, end: 20041231
  7. POTASSIUM CHLORIDE [Concomitant]
     Indication: HYPOKALAEMIA
     Dates: start: 19990622, end: 20041212

REACTIONS (4)
  - BLINDNESS [None]
  - CEREBROVASCULAR ACCIDENT [None]
  - MYOCARDIAL INFARCTION [None]
  - TRANSIENT ISCHAEMIC ATTACK [None]
